FAERS Safety Report 18260823 (Version 1)
Quarter: 2020Q3

REPORT INFORMATION
  Report Type: Spontaneous
  Country: US (occurrence: US)
  Receive Date: 20200914
  Receipt Date: 20200914
  Transmission Date: 20201103
  Serious: No
  Sender: FDA-Public Use
  Company Number: NVSC2020US250313

PATIENT
  Age: 83 Year
  Sex: Female

DRUGS (1)
  1. VOLTAREN [Suspect]
     Active Substance: DICLOFENAC SODIUM
     Indication: SPONDYLITIS
     Dosage: UNK
     Route: 065
     Dates: start: 202008

REACTIONS (7)
  - Fall [Unknown]
  - Muscular weakness [Unknown]
  - Tremor [Unknown]
  - Arthralgia [Unknown]
  - Adverse drug reaction [Unknown]
  - Hypoaesthesia [Unknown]
  - Product administered at inappropriate site [Unknown]

NARRATIVE: CASE EVENT DATE: 202008
